FAERS Safety Report 13711685 (Version 1)
Quarter: 2017Q3

REPORT INFORMATION
  Report Type: Spontaneous
  Country: FR (occurrence: FR)
  Receive Date: 20170703
  Receipt Date: 20170703
  Transmission Date: 20171127
  Serious: Yes (Other)
  Sender: FDA-Public Use
  Company Number: FR-BAYER-2017-125188

PATIENT
  Age: 37 Year
  Sex: Female
  Weight: 111 kg

DRUGS (1)
  1. MIRENA [Suspect]
     Active Substance: LEVONORGESTREL
     Indication: CONTRACEPTION
     Dosage: 20 MCG/24HR, CONT
     Route: 015
     Dates: start: 20160922, end: 20170509

REACTIONS (8)
  - Depression [Not Recovered/Not Resolved]
  - Hair growth abnormal [Unknown]
  - Loss of libido [Recovered/Resolved]
  - Anxiety [Not Recovered/Not Resolved]
  - Tachycardia [Unknown]
  - Weight increased [Recovered/Resolved]
  - Vertigo [Unknown]
  - Dyspepsia [Unknown]

NARRATIVE: CASE EVENT DATE: 201610
